FAERS Safety Report 7469230-9 (Version None)
Quarter: 2011Q2

REPORT INFORMATION
  Report Type: 
  Country: None (occurrence: None)
  Receive Date: 20110510
  Receipt Date: 20110421
  Transmission Date: 20111010
  Serious: No
  Sender: FDA-Public Use
  Company Number: US-B.I. PHARMACEUTICALS,INC./RIDGEFIELD-2011-BP-03427BP

PATIENT
  Age: 73 Year
  Sex: Female
  Weight: 60.1 kg

DRUGS (8)
  1. RECLAST [Concomitant]
     Route: 042
     Dates: start: 20090701
  2. TOPROL-XL [Concomitant]
     Dosage: 200 MG
     Dates: start: 20020326
  3. HYDROCHLOROTHIAZIDE [Concomitant]
     Dosage: 12.5 MG
     Dates: start: 20020327
  4. VERELAN [Concomitant]
     Dosage: 200 MG
     Dates: start: 20041028
  5. VIOKASE 16 [Concomitant]
     Route: 048
     Dates: start: 20070312
  6. SIMVASTATIN [Concomitant]
     Dosage: 20 MG
     Dates: start: 20090812
  7. COZAAR [Concomitant]
     Dosage: 100 MG
     Dates: start: 20080811
  8. PRADAXA [Suspect]
     Indication: CEREBROVASCULAR ACCIDENT
     Dates: start: 20101217, end: 20110120

REACTIONS (1)
  - ACTIVATED PARTIAL THROMBOPLASTIN TIME [None]
